FAERS Safety Report 24650996 (Version 1)
Quarter: 2024Q4

REPORT INFORMATION
  Report Type: Spontaneous
  Country: US (occurrence: US)
  Receive Date: 20241122
  Receipt Date: 20241122
  Transmission Date: 20250114
  Serious: No
  Sender: COSETTE PHARMACEUTICALS INC
  Company Number: US-COSETTE-CP2024US000342

PATIENT
  Sex: Female

DRUGS (4)
  1. CLOMIPHENE CITRATE [Suspect]
     Active Substance: CLOMIPHENE CITRATE
     Indication: Planning to become pregnant
     Route: 048
     Dates: start: 202407, end: 20241104
  2. GONAL-F [Concomitant]
     Active Substance: FOLLITROPIN
     Indication: Product used for unknown indication
     Route: 065
  3. GONADOTROPHIN, CHORIONIC [Concomitant]
     Active Substance: GONADOTROPHIN, CHORIONIC
     Indication: Product used for unknown indication
     Route: 065
  4. BIOSAL [Concomitant]
     Indication: Product used for unknown indication
     Route: 065

REACTIONS (4)
  - Visual impairment [Unknown]
  - Abdominal discomfort [Unknown]
  - Abdominal pain upper [Unknown]
  - Nausea [Unknown]

NARRATIVE: CASE EVENT DATE: 20240701
